FAERS Safety Report 12839863 (Version 1)
Quarter: 2016Q4

REPORT INFORMATION
  Report Type: Spontaneous
  Country: US (occurrence: US)
  Receive Date: 20161012
  Receipt Date: 20161012
  Transmission Date: 20170207
  Serious: No
  Sender: FDA-Public Use
  Company Number: US-ASTRAZENECA-2016SF05623

PATIENT
  Age: 21288 Day
  Sex: Female
  Weight: 89.8 kg

DRUGS (7)
  1. OXYCODONE [Concomitant]
     Active Substance: OXYCODONE
     Indication: SPINAL PAIN
     Route: 065
  2. MOVANTIK [Suspect]
     Active Substance: NALOXEGOL OXALATE
     Indication: CONSTIPATION
     Route: 048
     Dates: start: 20161002, end: 20161002
  3. DONNATEL [Concomitant]
     Indication: GASTRIC DISORDER
     Route: 065
  4. OXYCODONE [Concomitant]
     Active Substance: OXYCODONE
     Indication: ABDOMINAL PAIN UPPER
     Route: 065
  5. DYCLOCYLAMINE [Concomitant]
     Indication: GASTRIC DISORDER
     Route: 065
  6. HYDROTHYLAMINE [Concomitant]
     Indication: MUSCLE SPASMS
     Dosage: 0.125MG UNKNOWN
     Route: 060
  7. MILK OF MAGNESIA [Concomitant]
     Active Substance: MAGNESIUM HYDROXIDE
     Indication: CONSTIPATION
     Dosage: AT NIGHT
     Route: 065

REACTIONS (8)
  - Pain [Unknown]
  - Abdominal discomfort [Unknown]
  - Abdominal pain [Unknown]
  - Musculoskeletal discomfort [Unknown]
  - Feeling abnormal [Unknown]
  - Vomiting projectile [Unknown]
  - Weight decreased [Unknown]
  - Diarrhoea [Unknown]

NARRATIVE: CASE EVENT DATE: 20161002
